FAERS Safety Report 6557237-5 (Version None)
Quarter: 2010Q1

REPORT INFORMATION
  Report Type: 
  Country: None (occurrence: None)
  Receive Date: 20100129
  Receipt Date: 20100121
  Transmission Date: 20100710
  Serious: Yes (Other)
  Sender: FDA-Public Use
  Company Number: US-RB-001584-10

PATIENT
  Age: 35 Year
  Sex: Male

DRUGS (1)
  1. MUCINEX DM [Suspect]
     Dosage: TAKEN 1 TABLET A DAY FOR 3 DAYS
     Route: 048
     Dates: start: 20100119

REACTIONS (4)
  - FEELING JITTERY [None]
  - RESTLESSNESS [None]
  - TACHYCARDIA [None]
  - WRONG TECHNIQUE IN DRUG USAGE PROCESS [None]
